FAERS Safety Report 5132286-2 (Version None)
Quarter: 2006Q4

REPORT INFORMATION
  Report Type: 
  Country: None (occurrence: None)
  Receive Date: 20061019
  Receipt Date: 20061019
  Transmission Date: 20070319
  Serious: Yes (Hospitalization)
  Sender: FDA-Public Use
  Company Number: None

PATIENT
  Age: 73 Year
  Sex: Male
  Weight: 112.5 kg

DRUGS (9)
  1. QUETIAPINE FUMARATE [Suspect]
  2. SYNTHROID [Concomitant]
  3. HYDROCORTISONE ACETATE [Concomitant]
  4. CITALOPRAM [Concomitant]
  5. QUETIAPINE FUMARATE [Concomitant]
  6. SPIRONOLACTONE [Concomitant]
  7. NIASPAN [Concomitant]
  8. ASPIRIN [Concomitant]
  9. VITAMIN E [Concomitant]

REACTIONS (1)
  - SYNCOPE [None]
